FAERS Safety Report 15350003 (Version 4)
Quarter: 2019Q2

REPORT INFORMATION
  Report Type: Report from Study
  Country: JP (occurrence: JP)
  Receive Date: 20180904
  Receipt Date: 20190422
  Transmission Date: 20190711
  Serious: Yes (Other)
  Sender: FDA-Public Use
  Company Number: JP-BRISTOL-MYERS SQUIBB COMPANY-BMS-2018-079332

PATIENT
  Age: 13 Year
  Sex: Female
  Weight: 67 kg

DRUGS (8)
  1. PROGRAF [Concomitant]
     Active Substance: TACROLIMUS\TACROLIMUS ANHYDROUS
     Indication: JUVENILE IDIOPATHIC ARTHRITIS
     Dosage: 3.5 MILLIGRAM, QD
     Route: 048
     Dates: start: 20150507
  2. BIO-THREE [Concomitant]
     Active Substance: HERBALS
     Indication: PRODUCT USED FOR UNKNOWN INDICATION
     Dosage: 3 DOSAGE FORM, QD
     Route: 048
  3. ABATACEPT [Suspect]
     Active Substance: ABATACEPT
     Indication: JUVENILE IDIOPATHIC ARTHRITIS
     Dosage: 675 MG, UNK
     Route: 041
     Dates: start: 20180727, end: 20190208
  4. NAIXAN                             /00256201/ [Concomitant]
     Active Substance: NAPROXEN
     Indication: JUVENILE IDIOPATHIC ARTHRITIS
     Dosage: 200 MILLIGRAM, QD
     Route: 048
  5. ALFACALCIDOL [Concomitant]
     Active Substance: ALFACALCIDOL
     Indication: DISEASE COMPLICATION
     Dosage: 0.25 MICROGRAM, QD
     Route: 048
  6. PREDONINE [Concomitant]
     Active Substance: PREDNISOLONE
     Indication: JUVENILE IDIOPATHIC ARTHRITIS
     Dosage: 5 MILLIGRAM, QD
     Route: 048
  7. METHOTREXATE. [Concomitant]
     Active Substance: METHOTREXATE
     Indication: JUVENILE IDIOPATHIC ARTHRITIS
     Dosage: 12 MILLIGRAM, QWK
     Route: 048
     Dates: start: 20140205
  8. REBAMIPIDE [Concomitant]
     Active Substance: REBAMIPIDE
     Indication: DISEASE COMPLICATION
     Dosage: 300 MILLIGRAM, QD
     Route: 048

REACTIONS (3)
  - Therapeutic response decreased [Unknown]
  - Cough [Recovered/Resolved]
  - Painful respiration [Recovered/Resolved]

NARRATIVE: CASE EVENT DATE: 20180727
